FAERS Safety Report 5218517-9 (Version None)
Quarter: 2007Q1

REPORT INFORMATION
  Report Type: 
  Country: None (occurrence: None)
  Receive Date: 20061130
  Receipt Date: 20060823
  Transmission Date: 20070707
  Serious: Yes (Hospitalization)
  Sender: FDA-Public Use
  Company Number: US200606002601

PATIENT
  Age: 48 Year
  Sex: Male
  Weight: 99.8 kg

DRUGS (1)
  1. ZYPREXA [Suspect]
     Dosage: SEE IMAGE
     Route: 048
     Dates: start: 19970101, end: 20050101

REACTIONS (11)
  - ANXIETY [None]
  - CATARACT [None]
  - DIABETES MELLITUS [None]
  - FEAR [None]
  - GLYCOSURIA [None]
  - HYPERGLYCAEMIA [None]
  - HYPERPHAGIA [None]
  - HYPERTENSION [None]
  - POLYDIPSIA [None]
  - POLYURIA [None]
  - VISION BLURRED [None]
